FAERS Safety Report 8709979 (Version 2)
Quarter: 2012Q4

REPORT INFORMATION
  Report Type: 
  Country: PT (occurrence: PT)
  Receive Date: 20120806
  Receipt Date: 20120927
  Transmission Date: 20130627
  Serious: Yes (Disabling)
  Sender: FDA-Public Use
  Company Number: PT-TEVA-350856ISR

PATIENT
  Age: 63 Year
  Sex: Female

DRUGS (3)
  1. MIRTAZAPINA [Suspect]
     Indication: DEPRESSION
     Dosage: 15 Milligram Daily; 1 tablet per day
     Route: 048
     Dates: start: 20120706, end: 20120706
  2. DIAZEPAM [Concomitant]
     Indication: ANXIETY
     Dosage: 5 Milligram Daily;
     Route: 048
  3. DEPRESSION [Concomitant]
     Indication: ANXIETY
     Dosage: 20 Milligram Daily;
     Route: 048

REACTIONS (6)
  - Syncope [Recovering/Resolving]
  - Urinary incontinence [Recovering/Resolving]
  - Faecal incontinence [Recovering/Resolving]
  - Asthenia [Unknown]
  - Paraesthesia oral [Unknown]
  - Loss of consciousness [Recovering/Resolving]
